FAERS Safety Report 21373348 (Version 4)
Quarter: 2023Q2

REPORT INFORMATION
  Report Type: Report from Study
  Country: US (occurrence: US)
  Receive Date: 20220925
  Receipt Date: 20230425
  Transmission Date: 20230722
  Serious: Yes (Other)
  Sender: FDA-Public Use
  Company Number: US-NOVARTISTESTPH-NVSC2022US214633

PATIENT
  Age: 19 Year
  Sex: Female
  Weight: 105 kg

DRUGS (3)
  1. GILENYA [Suspect]
     Active Substance: FINGOLIMOD HYDROCHLORIDE
     Indication: Relapsing multiple sclerosis
     Dosage: 0.5 MG, QD
     Route: 048
  2. GILENYA [Suspect]
     Active Substance: FINGOLIMOD HYDROCHLORIDE
     Indication: Multiple sclerosis
     Dosage: 0.5 MG, QD
     Route: 048
     Dates: start: 20230301
  3. GILENYA [Suspect]
     Active Substance: FINGOLIMOD HYDROCHLORIDE
     Dosage: 0.5 MG, QD
     Route: 048
     Dates: start: 20230303

REACTIONS (7)
  - Multiple sclerosis [Unknown]
  - Tremor [Recovered/Resolved]
  - Asthenia [Recovered/Resolved with Sequelae]
  - Nausea [Recovered/Resolved]
  - Insomnia [Recovered/Resolved]
  - Fatigue [Recovered/Resolved with Sequelae]
  - Sinusitis [Recovered/Resolved]

NARRATIVE: CASE EVENT DATE: 20230301
